FAERS Safety Report 15825015 (Version 1)
Quarter: 2019Q1

REPORT INFORMATION
  Report Type: Spontaneous
  Country: US (occurrence: US)
  Receive Date: 20190114
  Receipt Date: 20190114
  Transmission Date: 20190417
  Serious: Yes (Life-Threatening)
  Sender: FDA-Public Use
  Company Number: None

PATIENT
  Age: 62 Year
  Sex: Female
  Weight: 100 kg

DRUGS (4)
  1. LOVENOX [Suspect]
     Active Substance: ENOXAPARIN SODIUM
     Indication: PULMONARY EMBOLISM
     Dates: start: 20190105, end: 20190108
  2. KETOROLAC 15MG [Concomitant]
  3. DIGOXIN 250MCG [Concomitant]
     Active Substance: DIGOXIN
  4. ASPIRIN 81MG [Concomitant]
     Active Substance: ASPIRIN

REACTIONS (5)
  - Anaemia [None]
  - Cardiac arrest [None]
  - Haematochezia [None]
  - Transfusion [None]
  - Respiratory distress [None]

NARRATIVE: CASE EVENT DATE: 20190109
